FAERS Safety Report 9985452 (Version 2)
Quarter: 2014Q1

REPORT INFORMATION
  Report Type: Report from Study
  Country: KR (occurrence: KR)
  Receive Date: 20140307
  Receipt Date: 20140307
  Transmission Date: 20141002
  Serious: Yes (Hospitalization)
  Sender: FDA-Public Use
  Company Number: KR-ALEXION PHARMACEUTICALS INC.-A201400758

PATIENT
  Sex: 0

DRUGS (9)
  1. SOLIRIS [Suspect]
     Indication: PAROXYSMAL NOCTURNAL HAEMOGLOBINURIA
     Dosage: 600 MG, QW
     Route: 042
     Dates: start: 20130719, end: 20130816
  2. SOLIRIS [Suspect]
     Dosage: 900 MG, Q2W
     Route: 042
     Dates: start: 20130828
  3. TANTUM                             /00052302/ [Concomitant]
     Indication: PROPHYLAXIS
     Dosage: 100 ML, PRN
     Route: 048
     Dates: start: 20140222, end: 20140224
  4. SODIUM BICARBONATE [Concomitant]
     Indication: PROPHYLAXIS
     Dosage: 20 MEQ, UNK
     Route: 042
     Dates: start: 20140220, end: 20140224
  5. CRAVIT [Concomitant]
     Indication: INFECTION PROPHYLAXIS
     Dosage: 500 MG, QD
     Route: 048
     Dates: start: 20140220
  6. RENALMIN [Concomitant]
     Indication: INFECTION PROPHYLAXIS
     Dosage: 1 T, QD
     Route: 048
     Dates: start: 20140221
  7. ALLEGRA D [Concomitant]
     Indication: INFECTION PROPHYLAXIS
     Dosage: 1T, BID
     Dates: start: 20140222
  8. LASIX                              /00032601/ [Concomitant]
     Indication: PROPHYLAXIS
     Dosage: 20 MG, SINGLE
     Route: 042
     Dates: start: 20140223, end: 20140223
  9. BENPROPERINE PHOSPHATE [Concomitant]
     Indication: INFECTION PROPHYLAXIS
     Dosage: 20 MG, TID
     Route: 048
     Dates: start: 20140222

REACTIONS (3)
  - Hyperbilirubinaemia [Recovered/Resolved]
  - Chills [Recovered/Resolved]
  - Myalgia [Recovered/Resolved]
